FAERS Safety Report 9303989 (Version 1)
Quarter: 2013Q2

REPORT INFORMATION
  Report Type: Spontaneous
  Country: IT (occurrence: IT)
  Receive Date: 20130522
  Receipt Date: 20130522
  Transmission Date: 20140414
  Serious: Yes (Other)
  Sender: FDA-Public Use
  Company Number: PHHY2013IT049365

PATIENT
  Sex: Male

DRUGS (2)
  1. AMOXICILLIN-CLAVULANIC ACID [Suspect]
     Indication: INFLUENZA
     Dosage: 2 G, DAILY DOSE
     Route: 048
     Dates: start: 20130102, end: 20130104
  2. TACHIPIRINA [Concomitant]
     Indication: HYPERPYREXIA

REACTIONS (4)
  - Tonsillitis [Recovering/Resolving]
  - Pharyngeal erythema [Recovering/Resolving]
  - Erythema [Recovering/Resolving]
  - Pruritus [Recovering/Resolving]
